FAERS Safety Report 18322893 (Version 1)
Quarter: 2020Q3

REPORT INFORMATION
  Report Type: Spontaneous
  Country: SE (occurrence: SE)
  Receive Date: 20200929
  Receipt Date: 20200929
  Transmission Date: 20201103
  Serious: Yes (Other)
  Sender: FDA-Public Use
  Company Number: SE-ACCORD-203168

PATIENT
  Age: 46 Year
  Sex: Female
  Weight: 76 kg

DRUGS (3)
  1. ASACOL [Concomitant]
     Active Substance: MESALAMINE
  2. URSOFALK [Concomitant]
     Active Substance: URSODIOL
  3. SERTRALINE ACCORD [Suspect]
     Active Substance: SERTRALINE HYDROCHLORIDE
     Indication: DEPRESSION
     Dosage: 50 MG TABLETS
     Dates: start: 20200904, end: 20200907

REACTIONS (1)
  - Dysphemia [Recovering/Resolving]

NARRATIVE: CASE EVENT DATE: 20200904
